FAERS Safety Report 8802097 (Version 1)
Quarter: 2012Q4

REPORT INFORMATION
  Report Type: 
  Country: US (occurrence: US)
  Receive Date: 20120921
  Receipt Date: 20120921
  Transmission Date: 20130627
  Serious: No
  Sender: FDA-Public Use
  Company Number: US-BAYER-2012-098852

PATIENT
  Age: 53 Year
  Sex: Male
  Weight: 72.56 kg

DRUGS (3)
  1. ALEVE CAPLET/TABLET,MIDOL EXTENDED RELIEF CAPLET [Suspect]
     Indication: ARTHRITIS
     Dosage: 2 DF, UNK
     Route: 048
     Dates: start: 20120917, end: 20120918
  2. E.S. BAYER? BACK + BODY ASPIRIN ANY SIZE [Concomitant]
     Indication: ARTHRITIS
     Dosage: UNK UNK, PRN
     Route: 048
     Dates: end: 20120916
  3. PRESCRIPTION ANTI-INFLAMMATORY [Concomitant]

REACTIONS (1)
  - Drug ineffective [None]
